APPROVED DRUG PRODUCT: NORETHINDRONE ACETATE AND ETHINYL ESTRADIOL
Active Ingredient: ETHINYL ESTRADIOL; NORETHINDRONE ACETATE
Strength: 0.03MG;1.5MG
Dosage Form/Route: TABLET;ORAL-28
Application: A202741 | Product #001 | TE Code: AB
Applicant: XIROMED LLC
Approved: Feb 20, 2015 | RLD: No | RS: No | Type: RX